FAERS Safety Report 18058127 (Version 1)
Quarter: 2020Q3

REPORT INFORMATION
  Report Type: Other
  Country: US (occurrence: US)
  Receive Date: 20200723
  Receipt Date: 20200723
  Transmission Date: 20201103
  Serious: No
  Sender: FDA-Public Use
  Company Number: US-ROCHE-2530125

PATIENT
  Age: 46 Year
  Sex: Female
  Weight: 113.5 kg

DRUGS (13)
  1. OCREVUS [Suspect]
     Active Substance: OCRELIZUMAB
     Indication: RELAPSING-REMITTING MULTIPLE SCLEROSIS
     Dosage: ON 08/JAN/2020, SHE HAD RECEIVED HER MOST RECENT INFUSION
     Route: 065
     Dates: start: 20190206
  2. OCREVUS [Suspect]
     Active Substance: OCRELIZUMAB
     Dosage: ONGOING :YES
     Route: 042
     Dates: start: 2019
  3. TRAMADOL. [Concomitant]
     Active Substance: TRAMADOL
     Indication: PAIN
     Dosage: ONGOING YES
     Dates: start: 20170510
  4. BACLOFEN. [Concomitant]
     Active Substance: BACLOFEN
     Indication: MUSCLE SPASTICITY
     Dosage: ONGOING YES
     Route: 048
  5. TIZANIDINE. [Concomitant]
     Active Substance: TIZANIDINE
     Indication: MUSCLE SPASTICITY
     Dosage: ONGOING YES
     Route: 048
  6. PROVIGIL [Concomitant]
     Active Substance: MODAFINIL
     Route: 048
  7. HYDROCHLOROTHIAZIDE. [Concomitant]
     Active Substance: HYDROCHLOROTHIAZIDE
     Dosage: ONGOING YES; FREQUENCY 1, INTERVAL 1
     Route: 048
  8. DULOXETINE DR [Concomitant]
     Active Substance: DULOXETINE
     Indication: DEPRESSION
  9. DIAZEPAM. [Concomitant]
     Active Substance: DIAZEPAM
     Indication: MUSCLE SPASTICITY
     Route: 048
  10. ROPINIROLE. [Concomitant]
     Active Substance: ROPINIROLE
     Indication: RESTLESS LEGS SYNDROME
     Route: 048
  11. LISINOPRIL. [Concomitant]
     Active Substance: LISINOPRIL
     Indication: HYPERTENSION
     Dosage: ONGOING YES
     Route: 048
  12. ACYCLOVIR. [Concomitant]
     Active Substance: ACYCLOVIR
     Indication: ORAL HERPES
     Dosage: ONGOING YES
     Route: 048
  13. DULOXETINE DR [Concomitant]
     Active Substance: DULOXETINE
     Indication: PAIN
     Dosage: ONGOING YES
     Route: 048

REACTIONS (20)
  - Gait inability [Not Recovered/Not Resolved]
  - Dysuria [Recovered/Resolved]
  - Skin exfoliation [Recovered/Resolved]
  - Flushing [Recovered/Resolved]
  - Fatigue [Not Recovered/Not Resolved]
  - Feelings of worthlessness [Not Recovered/Not Resolved]
  - Acne [Recovered/Resolved]
  - Influenza [Recovered/Resolved]
  - Muscle spasticity [Unknown]
  - Erythema [Recovered/Resolved]
  - Alopecia [Not Recovered/Not Resolved]
  - Eye irritation [Not Recovered/Not Resolved]
  - Acne cystic [Recovered/Resolved]
  - Asthenia [Not Recovered/Not Resolved]
  - Gait disturbance [Not Recovered/Not Resolved]
  - Oral herpes [Not Recovered/Not Resolved]
  - Headache [Recovered/Resolved]
  - Dry skin [Recovered/Resolved]
  - Muscle spasms [Not Recovered/Not Resolved]
  - Feeling hot [Recovered/Resolved]

NARRATIVE: CASE EVENT DATE: 201912
